FAERS Safety Report 24319804 (Version 1)
Quarter: 2024Q3

REPORT INFORMATION
  Report Type: Spontaneous
  Country: US (occurrence: None)
  Receive Date: 20240914
  Receipt Date: 20240914
  Transmission Date: 20241017
  Serious: No
  Sender: ASTRAZENECA
  Company Number: 2024A196952

PATIENT
  Sex: Male

DRUGS (1)
  1. FASENRA [Suspect]
     Active Substance: BENRALIZUMAB
     Indication: Single umbilical artery
     Route: 058

REACTIONS (3)
  - Haemorrhoids [Unknown]
  - Scrotal swelling [Unknown]
  - Cyanosis [Unknown]
